FAERS Safety Report 9002711 (Version 2)
Quarter: 2013Q1

REPORT INFORMATION
  Report Type: Spontaneous
  Country: US (occurrence: US)
  Receive Date: 20130107
  Receipt Date: 20130329
  Transmission Date: 20140127
  Serious: No
  Sender: FDA-Public Use
  Company Number: US-GLAXOSMITHKLINE-A0991627A

PATIENT
  Age: 62 Year
  Sex: Female
  Weight: 90.8 kg

DRUGS (13)
  1. BENLYSTA [Suspect]
     Indication: SYSTEMIC LUPUS ERYTHEMATOSUS
     Route: 042
     Dates: start: 20120710
  2. PLAQUENIL [Concomitant]
     Dosage: 200MG PER DAY
  3. PREDNISONE [Concomitant]
     Dosage: 40MG PER DAY
  4. AZATHIOPRINE [Concomitant]
     Dosage: 50MG PER DAY
  5. TRAMADOL [Concomitant]
  6. GABAPENTIN [Concomitant]
     Dosage: 2400MG PER DAY
  7. TEGRETOL XR [Concomitant]
     Dosage: 100MG PER DAY
  8. BONIVA [Concomitant]
  9. CALCIUM [Concomitant]
  10. MAGNESIUM [Concomitant]
  11. FLEXERIL [Concomitant]
  12. VITAMIN D3 [Concomitant]
  13. FISH OIL [Concomitant]

REACTIONS (10)
  - Abdominal discomfort [Recovered/Resolved]
  - Aphonia [Recovered/Resolved]
  - Throat irritation [Recovered/Resolved]
  - Diarrhoea [Recovered/Resolved]
  - Malaise [Unknown]
  - Hypersensitivity [Unknown]
  - Viral pharyngitis [Unknown]
  - Dysphonia [Unknown]
  - Fatigue [Unknown]
  - Pain [Unknown]
